FAERS Safety Report 5489530-1 (Version None)
Quarter: 2007Q4

REPORT INFORMATION
  Report Type: 
  Country: None (occurrence: None)
  Receive Date: 20071016
  Receipt Date: 20071016
  Transmission Date: 20080405
  Serious: Yes (Hospitalization)
  Sender: FDA-Public Use
  Company Number: None

PATIENT
  Age: 25 Year
  Sex: Female
  Weight: 61.2356 kg

DRUGS (1)
  1. ZYPREXA [Suspect]
     Indication: DRUG USE FOR UNKNOWN INDICATION
     Dosage: 2 TIMES PER DAY  AM AND PM  PO
     Route: 048
     Dates: start: 20070606, end: 20070619

REACTIONS (4)
  - ILL-DEFINED DISORDER [None]
  - SCHIZOPHRENIA, PARANOID TYPE [None]
  - SENSORY DISTURBANCE [None]
  - THINKING ABNORMAL [None]
